FAERS Safety Report 12625597 (Version 4)
Quarter: 2016Q3

REPORT INFORMATION
  Report Type: Spontaneous
  Country: IE (occurrence: IE)
  Receive Date: 20160805
  Receipt Date: 20160822
  Transmission Date: 20161109
  Serious: Yes (Other)
  Sender: FDA-Public Use
  Company Number: IE-GLAXOSMITHKLINE-IE2016GSK112925

PATIENT
  Age: 74 Year
  Sex: Male

DRUGS (3)
  1. LAMICTAL [Suspect]
     Active Substance: LAMOTRIGINE
     Indication: PRODUCT USED FOR UNKNOWN INDICATION
     Dosage: UNK
     Dates: start: 201510
  2. UBIQUINOL CO Q10 [Concomitant]
  3. UBIQUINOL CO Q10 [Concomitant]

REACTIONS (5)
  - Mobility decreased [Recovering/Resolving]
  - Mitochondrial cytopathy [Unknown]
  - Mitochondrial myopathy acquired [Unknown]
  - Dyspnoea [Recovered/Resolved]
  - Cardiomyopathy [Unknown]

NARRATIVE: CASE EVENT DATE: 201601
